FAERS Safety Report 10089048 (Version 1)
Quarter: 2014Q2

REPORT INFORMATION
  Report Type: Spontaneous
  Country: SK (occurrence: SK)
  Receive Date: 20140421
  Receipt Date: 20140421
  Transmission Date: 20141212
  Serious: Yes (Life-Threatening)
  Sender: FDA-Public Use
  Company Number: SK-JNJFOC-20140410414

PATIENT
  Sex: Female

DRUGS (9)
  1. XARELTO [Suspect]
     Indication: PRODUCT USED FOR UNKNOWN INDICATION
     Route: 048
     Dates: start: 2012, end: 2014
  2. OLTAR [Concomitant]
     Route: 065
  3. SIOFOR [Concomitant]
     Route: 065
  4. BISOMERCK [Concomitant]
     Route: 065
  5. TORVACARD [Concomitant]
     Route: 065
  6. TRITAZIDE [Concomitant]
     Route: 065
  7. THYROZOL [Concomitant]
     Route: 065
  8. OLICARD [Concomitant]
     Route: 048
  9. LIPANTHYL [Concomitant]
     Route: 065

REACTIONS (6)
  - Body temperature increased [Unknown]
  - Lymphadenopathy [Unknown]
  - Dyspnoea [Unknown]
  - Atrial fibrillation [Unknown]
  - Abdominal pain upper [Unknown]
  - Hyperhidrosis [Unknown]
